FAERS Safety Report 15486858 (Version 1)
Quarter: 2018Q4

REPORT INFORMATION
  Report Type: Spontaneous
  Country: US (occurrence: US)
  Receive Date: 20181011
  Receipt Date: 20181011
  Transmission Date: 20190205
  Serious: No
  Sender: FDA-Public Use
  Company Number: US-ACLARIS THERAPEUTICS-2018US008757

PATIENT
  Age: 54 Year
  Sex: Female

DRUGS (1)
  1. ESKATA [Suspect]
     Active Substance: HYDROGEN PEROXIDE
     Indication: SEBORRHOEIC KERATOSIS
     Dosage: 1 DF, UNK
     Route: 061
     Dates: start: 20180510

REACTIONS (3)
  - Skin hyperpigmentation [Not Recovered/Not Resolved]
  - Scar [Not Recovered/Not Resolved]
  - Application site pain [Not Recovered/Not Resolved]
